FAERS Safety Report 23472347 (Version 1)
Quarter: 2024Q1

REPORT INFORMATION
  Report Type: Spontaneous
  Country: US (occurrence: None)
  Receive Date: 20240202
  Receipt Date: 20240202
  Transmission Date: 20240410
  Serious: No
  Sender: FDA-Public Use
  Company Number: None

PATIENT
  Age: 31 Year
  Sex: Female
  Weight: 87.75 kg

DRUGS (4)
  1. QELBREE [Suspect]
     Active Substance: VILOXAZINE HYDROCHLORIDE
     Indication: Attention deficit hyperactivity disorder
     Dosage: 1 CAPSULE DAILY ORAL
     Route: 048
     Dates: start: 20240126, end: 20240130
  2. LIOTHYRONINE [Concomitant]
     Active Substance: LIOTHYRONINE
  3. SYNTHROID [Concomitant]
     Active Substance: LEVOTHYROXINE SODIUM
  4. Burproprion XR [Concomitant]

REACTIONS (1)
  - Migraine [None]

NARRATIVE: CASE EVENT DATE: 20240201
